FAERS Safety Report 14008191 (Version 1)
Quarter: 2017Q3

REPORT INFORMATION
  Report Type: Spontaneous
  Country: US (occurrence: None)
  Receive Date: 20170924
  Receipt Date: 20170924
  Transmission Date: 20171128
  Serious: Yes (Hospitalization)
  Sender: FDA-Public Use
  Company Number: None

PATIENT
  Age: 11 Year
  Sex: Female
  Weight: 22.9 kg

DRUGS (4)
  1. METHOTREXATE. [Suspect]
     Active Substance: METHOTREXATE
     Dates: end: 20170828
  2. VINCRISTINE SULFATE. [Suspect]
     Active Substance: VINCRISTINE SULFATE
     Dates: end: 20170828
  3. ACYCLOVIR. [Concomitant]
     Active Substance: ACYCLOVIR
  4. MERCAPTOPURINE. [Suspect]
     Active Substance: MERCAPTOPURINE
     Dates: end: 20170910

REACTIONS (6)
  - Electrocardiogram ST segment elevation [None]
  - Therapy cessation [None]
  - Dehydration [None]
  - Hypercalcaemia [None]
  - Hydronephrosis [None]
  - Acute kidney injury [None]

NARRATIVE: CASE EVENT DATE: 20170911
